FAERS Safety Report 6169373-6 (Version None)
Quarter: 2009Q2

REPORT INFORMATION
  Report Type: 
  Country: None (occurrence: None)
  Receive Date: 20090424
  Receipt Date: 20090422
  Transmission Date: 20091009
  Serious: Yes (Life-Threatening)
  Sender: FDA-Public Use
  Company Number: 2009SP003170

PATIENT
  Age: 81 Year
  Sex: Female
  Weight: 45 kg

DRUGS (13)
  1. TEMODAL [Suspect]
     Indication: GLIOBLASTOMA MULTIFORME
     Dosage: 75 MG/M2;QD;PO
     Route: 048
     Dates: start: 20061214, end: 20061217
  2. DEPAKENE [Suspect]
     Indication: BRAIN NEOPLASM
     Dosage: 200 MG;TID;PO
     Route: 048
     Dates: end: 20061220
  3. VEGETAMIN B (VEGETAMIN A ) [Suspect]
     Indication: DRUG USE FOR UNKNOWN INDICATION
     Dosage: 1 DF;HS;PO
     Route: 048
     Dates: start: 20061112, end: 20061220
  4. ASPIRIN [Concomitant]
  5. URSO 250 [Concomitant]
  6. MARZULENE-S [Concomitant]
  7. SERENACE [Concomitant]
  8. LAXOBERON [Concomitant]
  9. PREDONINE [Concomitant]
  10. CERCINE [Concomitant]
  11. PONSTEL [Concomitant]
  12. ACETAMINOPHEN [Concomitant]
  13. COLDRIN [Concomitant]

REACTIONS (2)
  - CONDITION AGGRAVATED [None]
  - HEPATIC FUNCTION ABNORMAL [None]
